FAERS Safety Report 4757860-4 (Version None)
Quarter: 2005Q3

REPORT INFORMATION
  Report Type: 
  Country: None (occurrence: None)
  Receive Date: 20050826
  Receipt Date: 20050712
  Transmission Date: 20060218
  Serious: No
  Sender: FDA-Public Use
  Company Number: WAES 0507USA01480

PATIENT
  Age: 66 Year
  Sex: Female
  Weight: 104.3273 kg

DRUGS (7)
  1. ZETIA [Suspect]
     Indication: LOW DENSITY LIPOPROTEIN INCREASED
     Dosage: 10 MG/DAILY/PO
     Route: 048
     Dates: start: 20050301
  2. DETROL LA [Suspect]
     Indication: URINARY INCONTINENCE
     Dosage: 4 MG/DAILY/PO
     Route: 048
     Dates: start: 20050301
  3. PRINIVIL [Concomitant]
  4. ZOCOR [Concomitant]
  5. ASPIRIN [Concomitant]
  6. INSULIN [Concomitant]
  7. METOPROLOL [Concomitant]

REACTIONS (3)
  - CONSTIPATION [None]
  - DIABETES MELLITUS INADEQUATE CONTROL [None]
  - DRY MOUTH [None]
